FAERS Safety Report 19999194 (Version 1)
Quarter: 2021Q4

REPORT INFORMATION
  Report Type: Spontaneous
  Country: US (occurrence: US)
  Receive Date: 20211027
  Receipt Date: 20211027
  Transmission Date: 20220303
  Serious: Yes (Other)
  Sender: FDA-Public Use
  Company Number: US-PRA-000140

PATIENT
  Age: 4 Month

DRUGS (4)
  1. METHYLPREDNISOLONE [Suspect]
     Active Substance: METHYLPREDNISOLONE
     Indication: Multisystem inflammatory syndrome in children
     Dosage: MAXIMUM 30 MG/KG/DAY (DAY 22-24)
     Route: 042
  2. IMMUNE GLOBULIN NOS [Suspect]
     Active Substance: IMMUNE GLOBULIN NOS
     Indication: Multisystem inflammatory syndrome in children
     Dosage: 2 G/KG DIVIDED IN TWO DOSES
     Route: 042
  3. ENOXAPARIN [Suspect]
     Active Substance: ENOXAPARIN
     Indication: Multisystem inflammatory syndrome in children
     Route: 065
  4. ASPIRIN [Suspect]
     Active Substance: ASPIRIN
     Indication: Multisystem inflammatory syndrome in children
     Route: 065

REACTIONS (2)
  - Product use in unapproved indication [Unknown]
  - Coronary artery thrombosis [Recovered/Resolved]
